FAERS Safety Report 20310196 (Version 1)
Quarter: 2022Q1

REPORT INFORMATION
  Report Type: Spontaneous
  Country: DE (occurrence: DE)
  Receive Date: 20220107
  Receipt Date: 20220107
  Transmission Date: 20220423
  Serious: Yes (Congenital Anomaly)
  Sender: FDA-Public Use
  Company Number: DE-EMBRYOTOX-202013041

PATIENT
  Age: 0 Year
  Sex: Male

DRUGS (10)
  1. CETIRIZINE [Suspect]
     Active Substance: CETIRIZINE HYDROCHLORIDE
     Indication: Seasonal allergy
     Dosage: 10 MILLIGRAM DAILY; ADDITIONAL INFO : 0. - 39.1. GESTATIONAL WEEK
     Route: 064
     Dates: start: 20201003, end: 20210704
  2. SYMBICORT [Suspect]
     Active Substance: BUDESONIDE\FORMOTEROL FUMARATE DIHYDRATE
     Indication: Asthma
     Dosage: 320 [UG/D (2X160) ] / 9 [UG/D (2X4.5) ] 2 SEPARATED DOSES , UNIT DOSE : 9 MCG , ADDITIONAL INFO : 0.
     Route: 064
     Dates: start: 20201003, end: 20210704
  3. URSONORM [Concomitant]
     Indication: Cholestasis of pregnancy
     Dosage: 750 [MG/D (3X250) ], ADDITIONAL INFO : 37.3. - 39.1. GESTATIONAL WEEK
     Route: 064
     Dates: start: 20210622, end: 20210704
  4. LACHGAS [Concomitant]
     Indication: Labour pain
     Dosage: ADDITIONAL INFO : TRIMESTER: INTRAPARTUM
     Route: 064
  5. DIETARY SUPPLEMENT\HERBALS [Concomitant]
     Active Substance: DIETARY SUPPLEMENT\HERBALS
     Indication: Sinusitis
     Dosage: ADDITIONAL INFO : 8.3. - 11.6. GESTATIONAL WEEK
     Route: 064
  6. SULTANOL [Concomitant]
     Active Substance: ALBUTEROL SULFATE
     Indication: Asthma
     Dosage: NO MORE THAN 4 TIMES DURING THE ENTIRE PREGNANCY , ADDITIONAL INFO : TRIMESTER: UNKNOWN TRIMESTER
     Route: 064
  7. REPEVAX [Concomitant]
     Active Substance: DIPHTHERIA AND TETANUS TOXOIDS AND ACELLULAR PERTUSSIS ADSORBED AND INACTIVATED POLIOVIRUS VACCINE
     Indication: Immunisation
     Dosage: ADDITIONAL INFO : 32.3. - 32.3. GESTATIONAL WEEK
     Route: 064
     Dates: start: 20210518, end: 20210518
  8. COMIRNATY [Concomitant]
     Active Substance: TOZINAMERAN
     Indication: COVID-19 immunisation
     Dosage: ADDITIONAL INFO : 33.4. - 33.4. GESTATIONAL WEEK
     Route: 064
     Dates: start: 20210526, end: 20210526
  9. COMIRNATY [Concomitant]
     Active Substance: TOZINAMERAN
     Indication: COVID-19 immunisation
     Dosage: ADDITIONAL INFO : 33.4. - 33.4. GESTATIONAL WEEK
     Route: 064
     Dates: start: 20210630, end: 20210630
  10. ASPIRIN [Concomitant]
     Active Substance: ASPIRIN
     Indication: Prophylaxis
     Dosage: 150 MILLIGRAM DAILY; ADDITIONAL INFO :7. - 36.3. GESTATIONAL WEEK
     Route: 064

REACTIONS (2)
  - Kidney duplex [Unknown]
  - Foetal exposure during pregnancy [Unknown]

NARRATIVE: CASE EVENT DATE: 20201003
